FAERS Safety Report 20821680 (Version 2)
Quarter: 2022Q4

REPORT INFORMATION
  Report Type: Report from Study
  Country: US (occurrence: None)
  Receive Date: 20220512
  Receipt Date: 20221018
  Transmission Date: 20230112
  Serious: Yes (Death)
  Sender: FDA-Public Use
  Company Number: US-ROCHE-2232963

PATIENT
  Age: 60 Year
  Sex: Male
  Weight: 86.4 kg

DRUGS (17)
  1. ATEZOLIZUMAB [Suspect]
     Active Substance: ATEZOLIZUMAB
     Indication: Cholangiocarcinoma
     Dosage: ON 18/OCT/2018, HE RECEIVED HIS MOST RECENT DOSE OF ATEZOLIZUMAB PRIOR TO THE AE ONSET.
     Route: 041
     Dates: start: 20181004, end: 20181018
  2. COBIMETINIB [Suspect]
     Active Substance: COBIMETINIB
     Indication: Cholangiocarcinoma
     Dosage: ON 25/OCT/2018, HE RECEIVED HIS MOST RECENT DOSE OF COBIMETINIB PRIOR TO THE AE ONSET.
     Route: 048
     Dates: start: 20181004, end: 20181025
  3. ACETAMINOPHEN [Concomitant]
     Active Substance: ACETAMINOPHEN
  4. ASPIRIN [Concomitant]
     Active Substance: ASPIRIN
  5. CYANOCOBALAMIN [Concomitant]
     Active Substance: CYANOCOBALAMIN
  6. DIPHENOXYLATE HYDROCHLORIDE [Concomitant]
     Active Substance: DIPHENOXYLATE HYDROCHLORIDE
  7. HYDROCORTISONE [Concomitant]
     Active Substance: HYDROCORTISONE
  8. LIDOCAINE\PRILOCAINE [Concomitant]
     Active Substance: LIDOCAINE\PRILOCAINE
  9. LOPERAMIDE [Concomitant]
     Active Substance: LOPERAMIDE
  10. METFORMIN [Concomitant]
     Active Substance: METFORMIN HYDROCHLORIDE
  11. METOPROLOL [Concomitant]
     Active Substance: METOPROLOL
  12. NICOTINE [Concomitant]
     Active Substance: NICOTINE
  13. ONDANSETRON [Concomitant]
     Active Substance: ONDANSETRON
  14. OXYCODONE [Concomitant]
     Active Substance: OXYCODONE
  15. PROCHLORPERAZINE [Concomitant]
     Active Substance: PROCHLORPERAZINE
  16. SIMETHICONE (DIMETHICONE) [Concomitant]
     Active Substance: DIMETHICONE
  17. SITAGLIPTIN PHOSPHATE [Concomitant]
     Active Substance: SITAGLIPTIN PHOSPHATE

REACTIONS (1)
  - Diarrhoea [Fatal]

NARRATIVE: CASE EVENT DATE: 20181020
